FAERS Safety Report 7939572-9 (Version None)
Quarter: 2011Q4

REPORT INFORMATION
  Report Type: 
  Country: None (occurrence: None)
  Receive Date: 20111125
  Receipt Date: 20111117
  Transmission Date: 20120403
  Serious: Yes (Other)
  Sender: FDA-Public Use
  Company Number: JP-PFIZER INC-K201101180

PATIENT
  Age: 83 Year
  Sex: Male

DRUGS (6)
  1. CLONAZEPAM [Suspect]
     Dosage: UNK
     Route: 041
     Dates: start: 20100215, end: 20100216
  2. SYNERCID [Suspect]
     Indication: MUSCLE ABSCESS
  3. VANCOMYCIN [Concomitant]
     Dosage: 750 MG, 1X/DAY
     Dates: start: 20100129, end: 20100130
  4. SYNERCID [Suspect]
     Indication: SEPSIS
     Dosage: 7.5 MG/KG, 3X/DAY
     Route: 041
     Dates: start: 20100131, end: 20100209
  5. SYNERCID [Suspect]
     Indication: ARTHRITIS BACTERIAL
     Dosage: 300 MG, 2X/DAY
     Route: 041
     Dates: start: 20100215, end: 20100216
  6. SYNERCID [Suspect]
     Indication: ABDOMINAL WALL ABSCESS

REACTIONS (2)
  - PHLEBITIS [None]
  - MYOCLONUS [None]
